FAERS Safety Report 14121737 (Version 2)
Quarter: 2017Q4

REPORT INFORMATION
  Report Type: Spontaneous
  Country: GB (occurrence: GB)
  Receive Date: 20171024
  Receipt Date: 20171027
  Transmission Date: 20180321
  Serious: Yes (Other)
  Sender: FDA-Public Use
  Company Number: GB-PFIZER INC-2017457704

PATIENT
  Age: 62 Year
  Sex: Female

DRUGS (6)
  1. PREDNISOLONE. [Concomitant]
     Active Substance: PREDNISOLONE
     Dosage: UNK
  2. CEFTAZIDIME. [Suspect]
     Active Substance: CEFTAZIDIME
     Dosage: 1 G, 2X/DAY
  3. CEFTAZIDIME. [Suspect]
     Active Substance: CEFTAZIDIME
     Indication: LOWER RESPIRATORY TRACT INFECTION
     Dosage: 2 G, 2X/DAY
     Route: 042
  4. BECLOMETHASONE [Concomitant]
     Active Substance: BECLOMETHASONE
     Dosage: UNK
  5. SALBUTAMOL [Concomitant]
     Active Substance: ALBUTEROL
     Dosage: UNK
  6. AMPICILLIN [Concomitant]
     Active Substance: AMPICILLIN
     Indication: LOWER RESPIRATORY TRACT INFECTION
     Dosage: 500 MG, 4X/DAY
     Route: 048

REACTIONS (2)
  - Neurotoxicity [Recovered/Resolved]
  - Hallucinations, mixed [Recovered/Resolved]
